FAERS Safety Report 20098246 (Version 1)
Quarter: 2021Q4

REPORT INFORMATION
  Report Type: Spontaneous
  Country: CN (occurrence: CN)
  Receive Date: 20211122
  Receipt Date: 20211122
  Transmission Date: 20220303
  Serious: Yes (Hospitalization)
  Sender: FDA-Public Use
  Company Number: CN-PFIZER INC-202101596526

PATIENT
  Age: 72 Year
  Sex: Male
  Weight: 57 kg

DRUGS (2)
  1. LYRICA [Suspect]
     Active Substance: PREGABALIN
     Indication: Post herpetic neuralgia
     Dosage: 75 MG, 2X/DAY
     Route: 048
     Dates: end: 20211103
  2. LYRICA [Suspect]
     Active Substance: PREGABALIN
     Dosage: 150 MG, 2X/DAY
     Route: 048
     Dates: start: 20211104, end: 20211112

REACTIONS (6)
  - Herpes zoster [Unknown]
  - Condition aggravated [Unknown]
  - Dizziness [Recovering/Resolving]
  - Nausea [Recovered/Resolved]
  - Decreased appetite [Recovered/Resolved]
  - Vomiting [Recovered/Resolved]

NARRATIVE: CASE EVENT DATE: 20211106
